FAERS Safety Report 7540377-1 (Version None)
Quarter: 2011Q2

REPORT INFORMATION
  Report Type: 
  Country: None (occurrence: None)
  Receive Date: 20110610
  Receipt Date: 20110608
  Transmission Date: 20111010
  Serious: Yes (Hospitalization)
  Sender: FDA-Public Use
  Company Number: NL-MERCK-1106NLD00003

PATIENT
  Age: 69 Year
  Sex: Male
  Weight: 85 kg

DRUGS (2)
  1. ZOCOR [Suspect]
     Indication: HYPERCHOLESTEROLAEMIA
     Route: 048
     Dates: start: 20090324, end: 20110316
  2. ASPIRIN [Concomitant]
     Route: 048
     Dates: start: 20100324

REACTIONS (7)
  - PRURITUS [None]
  - MYALGIA [None]
  - SLEEP DISORDER [None]
  - HYPOAESTHESIA ORAL [None]
  - PARAESTHESIA [None]
  - ALOPECIA [None]
  - ARTHRALGIA [None]
